FAERS Safety Report 21890532 (Version 1)
Quarter: 2023Q1

REPORT INFORMATION
  Report Type: Spontaneous
  Country: US (occurrence: US)
  Receive Date: 20230120
  Receipt Date: 20230120
  Transmission Date: 20230418
  Serious: No
  Sender: FDA-Public Use
  Company Number: US-STRIDES ARCOLAB LIMITED-2022SP000810

PATIENT
  Sex: Female
  Weight: 62.6 kg

DRUGS (1)
  1. METHOTREXATE [Suspect]
     Active Substance: METHOTREXATE
     Indication: Product used for unknown indication
     Dosage: UNK, 1 PILL
     Route: 065

REACTIONS (2)
  - Urticaria [Unknown]
  - Drug hypersensitivity [Unknown]
